FAERS Safety Report 23834854 (Version 2)
Quarter: 2024Q2

REPORT INFORMATION
  Report Type: Spontaneous
  Country: US (occurrence: US)
  Receive Date: 20240509
  Receipt Date: 20240606
  Transmission Date: 20240715
  Serious: No
  Sender: FDA-Public Use
  Company Number: US-AMGEN-USASP2024089820

PATIENT
  Age: 63 Year
  Sex: Female
  Weight: 73.379 kg

DRUGS (18)
  1. REPATHA [Suspect]
     Active Substance: EVOLOCUMAB
     Indication: Blood cholesterol abnormal
     Dosage: 140 MILLIGRAM, Q2WK
     Route: 058
     Dates: start: 202307
  2. REPATHA [Suspect]
     Active Substance: EVOLOCUMAB
     Indication: Blood triglycerides abnormal
  3. REPATHA [Suspect]
     Active Substance: EVOLOCUMAB
     Indication: Type IIa hyperlipidaemia
  4. ASPIRIN [Concomitant]
     Active Substance: ASPIRIN
     Dosage: 81 MILLIGRAM
     Route: 065
  5. BUPROPION HYDROCHLORIDE [Concomitant]
     Active Substance: BUPROPION HYDROCHLORIDE
     Dosage: SUSTAINED- RE LEASE 12 HR 200 MG, 90 TABLETS FOR 90 DAYS, 1 TABLET EVERY MORNING
     Route: 048
  6. CLOBETASOL [Concomitant]
     Active Substance: CLOBETASOL
     Dosage: STRENGTH: 0.05%
     Route: 065
  7. EZETIMIBE [Concomitant]
     Active Substance: EZETIMIBE
     Dosage: 10 MILLIGRAM, QD (90 TABLETS FOR 90 DAYS)
     Route: 048
  8. LIDOCAINE [Concomitant]
     Active Substance: LIDOCAINE
     Dosage: STRENGTH: 3%
     Route: 065
  9. METFORMIN [Concomitant]
     Active Substance: METFORMIN HYDROCHLORIDE
     Indication: Diabetes mellitus
     Dosage: 500 MILLIGRAM, BID (180 TABLETS FOR 90 DAYS)
     Route: 048
  10. METHYLCOBALAMIN [Concomitant]
     Active Substance: METHYLCOBALAMIN
     Route: 065
  11. LEVOMEFOLATE CALCIUM [Concomitant]
     Active Substance: LEVOMEFOLATE CALCIUM
     Route: 065
  12. METRONIDAZOLE [Concomitant]
     Active Substance: METRONIDAZOLE
     Dosage: STRENGTH: 0.75%
     Route: 065
  13. MOUNJARO [Concomitant]
     Active Substance: TIRZEPATIDE
     Indication: Type 2 diabetes mellitus
     Dosage: 7.5 MG/0.5 ML, 6MLS FOR 90 DAYS/ 1 PEN ONCE A WEEK
     Route: 058
  14. NALTREXONE [Concomitant]
     Active Substance: NALTREXONE
     Dosage: 50 MILLIGRAM, QD (90 TABLETS FOR 90 DAYS)
     Route: 048
  15. OMEGA-3-ACID ETHYL ESTERS [Concomitant]
     Active Substance: OMEGA-3-ACID ETHYL ESTERS
     Dosage: 2 GRAM, BID WITH MEALS (1 GRAM, 360 CAPSULES FOR 90 DAYS)
     Route: 048
  16. PANTOPRAZOLE [Concomitant]
     Active Substance: PANTOPRAZOLE
     Dosage: 40 MILLIGRAM, QD ONE HOUR BEFORE MEALS (90 TABLETS FOR 90 DAYS)
     Route: 048
  17. TELMISARTAN [Concomitant]
     Active Substance: TELMISARTAN
     Dosage: 40 MILLIGRAM, QD (90 TABLETS FOR 90 DAYS)
     Route: 048
  18. VOLTAREN [Concomitant]
     Active Substance: DICLOFENAC SODIUM
     Dosage: STRENGTH: 1MG/ML
     Route: 065

REACTIONS (7)
  - Incorrect dose administered by device [Unknown]
  - Device use error [Unknown]
  - Device difficult to use [Unknown]
  - Increased appetite [Unknown]
  - Weight fluctuation [Unknown]
  - Nausea [Unknown]
  - Arthralgia [Unknown]

NARRATIVE: CASE EVENT DATE: 20240503
